FAERS Safety Report 6806960-3 (Version None)
Quarter: 2010Q2

REPORT INFORMATION
  Report Type: 
  Country: None (occurrence: None)
  Receive Date: 20100629
  Receipt Date: 20080602
  Transmission Date: 20101027
  Serious: No
  Sender: FDA-Public Use
  Company Number: US-PFIZER INC-2008047434

PATIENT

DRUGS (2)
  1. XANAX [Suspect]
  2. AMBIEN [Suspect]

REACTIONS (2)
  - DRUG WITHDRAWAL SYNDROME [None]
  - INSOMNIA [None]
